FAERS Safety Report 25642087 (Version 1)
Quarter: 2025Q3

REPORT INFORMATION
  Report Type: Report from Study
  Country: ZA (occurrence: ZA)
  Receive Date: 20250805
  Receipt Date: 20250805
  Transmission Date: 20251020
  Serious: Yes (Other)
  Sender: ROCHE
  Company Number: ZA-ROCHE-10000352854

PATIENT
  Sex: Male

DRUGS (1)
  1. OCREVUS [Suspect]
     Active Substance: OCRELIZUMAB
     Indication: Primary progressive multiple sclerosis
     Dosage: THEREAFTER 600MG EVERY AFTER 6 MONTHS
     Route: 042

REACTIONS (2)
  - Multiple sclerosis [Unknown]
  - Secondary progressive multiple sclerosis [Unknown]
